FAERS Safety Report 4526218-5 (Version None)
Quarter: 2004Q4

REPORT INFORMATION
  Report Type: 
  Country: None (occurrence: None)
  Receive Date: 20041202
  Receipt Date: 20040816
  Transmission Date: 20050328
  Serious: No
  Sender: FDA-Public Use
  Company Number: 200415553BWH

PATIENT
  Age: 69 Year
  Sex: Male
  Weight: 96.1626 kg

DRUGS (6)
  1. LEVITRA [Suspect]
     Indication: ERECTILE DYSFUNCTION
     Dosage: 20 MG, TOTAL DAILY, ORAL
     Route: 048
     Dates: start: 20040301
  2. GLUCOPHAGE [Concomitant]
  3. HYDROCHLOROTHIAZIDE [Concomitant]
  4. ALTACE [Concomitant]
  5. ACTOS [Concomitant]
  6. GLYBURIDE [Concomitant]

REACTIONS (4)
  - BACK PAIN [None]
  - DYSPEPSIA [None]
  - ERECTILE DYSFUNCTION [None]
  - FLUSHING [None]
